FAERS Safety Report 5371937-4 (Version None)
Quarter: 2007Q2

REPORT INFORMATION
  Report Type: 
  Country: None (occurrence: None)
  Receive Date: 20070625
  Receipt Date: 20070612
  Transmission Date: 20071010
  Serious: Yes (Hospitalization, Other)
  Sender: FDA-Public Use
  Company Number: 2007AP000643

PATIENT
  Age: 72 Year
  Sex: Female

DRUGS (11)
  1. METOPROLOL TARTRATE [Suspect]
     Indication: HYPERTENSION
     Dosage: SEE IMAGE
  2. FELODIPINE [Concomitant]
  3. CANDESARTAN (CANDESARTAN) [Concomitant]
  4. FUROSEMIDE [Concomitant]
  5. FOSINOPRIL SODIUM [Concomitant]
  6. ASPIRIN [Concomitant]
  7. ROSUVASTATIN (ROSUVASTATIN) [Concomitant]
  8. LEVOTHYROXINE SODIUM [Concomitant]
  9. INSULIN (INSULIN) [Concomitant]
  10. BROMAZEPAM (BROMAZEPAM) [Concomitant]
  11. COLCHICUM JTL LIQ [Concomitant]

REACTIONS (12)
  - BLOOD PRESSURE INCREASED [None]
  - CARDIAC FAILURE CONGESTIVE [None]
  - COUGH [None]
  - DEHYDRATION [None]
  - DRUG INTERACTION [None]
  - DYSPNOEA [None]
  - FAECAL INCONTINENCE [None]
  - FALL [None]
  - HYPERKALAEMIA [None]
  - LOWER RESPIRATORY TRACT INFECTION [None]
  - RENAL FAILURE ACUTE [None]
  - URINARY INCONTINENCE [None]
